FAERS Safety Report 25263141 (Version 1)
Quarter: 2025Q2

REPORT INFORMATION
  Report Type: Spontaneous
  Country: US (occurrence: None)
  Receive Date: 20250501
  Receipt Date: 20250501
  Transmission Date: 20250716
  Serious: No
  Sender: FDA-CTU
  Company Number: None

PATIENT
  Age: 89 Year
  Sex: Male

DRUGS (1)
  1. TRIAMCINOLONE DIACETATE [Suspect]
     Active Substance: TRIAMCINOLONE DIACETATE
     Indication: Pain
     Route: 050
     Dates: start: 20240724, end: 20240726

REACTIONS (2)
  - Hyperglycaemia [None]
  - Syncope [None]

NARRATIVE: CASE EVENT DATE: 20240801
